FAERS Safety Report 4428296-0 (Version None)
Quarter: 2004Q4

REPORT INFORMATION
  Report Type: 
  Country: None (occurrence: None)
  Receive Date: 20040818
  Receipt Date: 20040818
  Transmission Date: 20050328
  Serious: Yes (Hospitalization)
  Sender: FDA-Public Use
  Company Number: None

PATIENT
  Age: 87 Year
  Sex: Female
  Weight: 61.3 kg

DRUGS (3)
  1. CRESTOR [Suspect]
     Indication: CORONARY ARTERY DISEASE
     Dosage: DAILY ORAL
     Route: 048
     Dates: start: 20040225, end: 20040321
  2. CRESTOR [Suspect]
     Indication: MYOCARDIAL INFARCTION
     Dosage: DAILY ORAL
     Route: 048
     Dates: start: 20040225, end: 20040321
  3. PLAVIX [Suspect]
     Indication: STENT PLACEMENT
     Dosage: 75 MG DAILY ORAL
     Route: 048
     Dates: start: 20040225, end: 20040321

REACTIONS (17)
  - ANOREXIA [None]
  - ASTHENIA [None]
  - DYSPNOEA [None]
  - FATIGUE [None]
  - FEELING ABNORMAL [None]
  - FLUID RETENTION [None]
  - HYPONATRAEMIA [None]
  - INAPPROPRIATE ANTIDIURETIC HORMONE SECRETION [None]
  - INFLAMMATION [None]
  - LETHARGY [None]
  - LYMPHADENOPATHY [None]
  - PLEURAL EFFUSION [None]
  - RASH ERYTHEMATOUS [None]
  - RASH GENERALISED [None]
  - SYSTEMIC LUPUS ERYTHEMATOSUS [None]
  - ULTRASOUND ABDOMEN ABNORMAL [None]
  - WEIGHT DECREASED [None]
